FAERS Safety Report 4312811-1 (Version None)
Quarter: 2004Q1

REPORT INFORMATION
  Report Type: 
  Country: None (occurrence: None)
  Receive Date: 20040304
  Receipt Date: 20040219
  Transmission Date: 20041129
  Serious: Yes (Hospitalization)
  Sender: FDA-Public Use
  Company Number: 2003-05853

PATIENT
  Age: 41 Year
  Sex: Female

DRUGS (8)
  1. TENOFOVIR DF [Suspect]
     Indication: HIV INFECTION
     Dosage: 300 MG QD; PO
     Route: 048
     Dates: start: 20011122, end: 20030328
  2. ABACAVIR [Concomitant]
  3. NEVIRAPINE [Concomitant]
  4. REBETOL [Concomitant]
  5. VIRAFERONPEG [Concomitant]
  6. RIVOTRIL [Concomitant]
  7. LAROXYL [Concomitant]
  8. SUBUTEX [Concomitant]

REACTIONS (8)
  - ANAEMIA [None]
  - GLYCOSURIA [None]
  - HYPOPHOSPHATAEMIA [None]
  - MYALGIA [None]
  - PARAESTHESIA [None]
  - RENAL FAILURE ACUTE [None]
  - RENAL TUBULAR DISORDER [None]
  - WEIGHT DECREASED [None]
